FAERS Safety Report 10430074 (Version 1)
Quarter: 2014Q3

REPORT INFORMATION
  Report Type: Spontaneous
  Country: US (occurrence: None)
  Receive Date: 20140902
  Receipt Date: 20140902
  Transmission Date: 20150326
  Serious: Yes (Hospitalization)
  Sender: FDA-Public Use
  Company Number: IMP_06748_2013

PATIENT
  Age: 44 Year
  Sex: Female

DRUGS (1)
  1. CABERGOLINE. [Suspect]
     Active Substance: CABERGOLINE
     Indication: PROLACTINOMA
     Dosage: DF

REACTIONS (7)
  - Depressed mood [None]
  - Lethargy [None]
  - Psychotic disorder [None]
  - Hallucination, visual [None]
  - Delusion [None]
  - Suicidal ideation [None]
  - Anxiety [None]
